FAERS Safety Report 19752686 (Version 1)
Quarter: 2021Q3

REPORT INFORMATION
  Report Type: Spontaneous
  Country: US (occurrence: US)
  Receive Date: 20210827
  Receipt Date: 20210827
  Transmission Date: 20211014
  Serious: No
  Sender: FDA-Public Use
  Company Number: US-INDIVIOR LIMITED-INDV-130364-2021

PATIENT
  Age: 49 Year
  Sex: Male

DRUGS (1)
  1. PERSERIS [Suspect]
     Active Substance: RISPERIDONE
     Dosage: 90 MILLIGRAM, QMO
     Route: 058
     Dates: start: 20210709

REACTIONS (2)
  - Product preparation error [Recovered/Resolved]
  - Product administered by wrong person [Recovered/Resolved]

NARRATIVE: CASE EVENT DATE: 20210709
